FAERS Safety Report 6886974-8 (Version None)
Quarter: 2010Q3

REPORT INFORMATION
  Report Type: 
  Country: None (occurrence: None)
  Receive Date: 20100730
  Receipt Date: 20100726
  Transmission Date: 20110219
  Serious: Yes (Death)
  Sender: FDA-Public Use
  Company Number: ID-JNJFOC-20100704938

PATIENT
  Age: 19 Year
  Sex: Male
  Weight: 50 kg

DRUGS (13)
  1. DORIPENEM MONOHYDRATE [Suspect]
     Indication: PNEUMONIA
     Route: 041
     Dates: start: 20100622
  2. MORPHINE [Concomitant]
     Route: 065
  3. METRONIDAZOLE [Concomitant]
     Route: 065
  4. CEFOTAXIM [Concomitant]
     Route: 065
  5. METOCLOPRAMIDE [Concomitant]
     Route: 065
  6. ANTACID TAB [Concomitant]
     Route: 065
  7. METAMIZOLE [Concomitant]
     Route: 065
  8. PROPOFOL [Concomitant]
     Dosage: 5-10MG PER HOUR
     Route: 065
  9. HEPARIN [Concomitant]
     Route: 065
  10. FENTANYL [Concomitant]
     Route: 065
  11. PARACETAMOL [Concomitant]
     Route: 065
  12. MULTI-VITAMINS [Concomitant]
     Route: 065
  13. EPINEPHRINE [Concomitant]
     Route: 065

REACTIONS (2)
  - BRADYCARDIA [None]
  - OXYGEN SATURATION DECREASED [None]
